FAERS Safety Report 7645892-8 (Version None)
Quarter: 2011Q3

REPORT INFORMATION
  Report Type: 
  Country: None (occurrence: None)
  Receive Date: 20110729
  Receipt Date: 20110721
  Transmission Date: 20111222
  Serious: Yes (Hospitalization, Other)
  Sender: FDA-Public Use
  Company Number: US-BAYER-2010-007086

PATIENT
  Age: 38 Year
  Sex: Female
  Weight: 66 kg

DRUGS (9)
  1. YASMIN [Suspect]
     Indication: PREMENSTRUAL SYNDROME
  2. PERMETHRIN [Concomitant]
     Dosage: UNK
     Route: 061
     Dates: start: 20060918
  3. YAZ [Suspect]
     Indication: PREMENSTRUAL SYNDROME
  4. CIPROFLOXACIN HCL [Concomitant]
     Dosage: UNK
     Dates: start: 20050601
  5. YASMIN [Suspect]
     Indication: ACNE
     Dosage: UNK
     Dates: start: 20050101, end: 20060101
  6. YAZ [Suspect]
     Indication: ACNE
     Dosage: UNK
     Dates: start: 20050101, end: 20060101
  7. GREEN TEA EXTRACT [Concomitant]
     Indication: WEIGHT CONTROL
  8. EPHEDRA [Concomitant]
     Dosage: UNK
     Route: 048
     Dates: start: 20040101, end: 20050101
  9. LOESTRIN FE 1/20 [Concomitant]
     Dosage: UNK
     Dates: start: 20061207

REACTIONS (18)
  - CHOLELITHIASIS [None]
  - CHOLECYSTECTOMY [None]
  - ABNORMAL SENSATION IN EYE [None]
  - FALL [None]
  - GAIT DISTURBANCE [None]
  - CHOLECYSTITIS CHRONIC [None]
  - HEART RATE INCREASED [None]
  - DISCOMFORT [None]
  - DIZZINESS [None]
  - DYSPNOEA [None]
  - DIPLOPIA [None]
  - RASH GENERALISED [None]
  - THROAT TIGHTNESS [None]
  - INJURY [None]
  - PAIN [None]
  - SOMNOLENCE [None]
  - VOMITING [None]
  - TREMOR [None]
